FAERS Safety Report 25413242 (Version 1)
Quarter: 2025Q2

REPORT INFORMATION
  Report Type: Spontaneous
  Country: IN (occurrence: IN)
  Receive Date: 20250609
  Receipt Date: 20250609
  Transmission Date: 20250716
  Serious: Yes (Hospitalization, Other)
  Sender: GLAND PHARMA LTD
  Company Number: IN-GLANDPHARMA-IN-2025GLNLIT01353

PATIENT
  Age: 6 Decade
  Sex: Male

DRUGS (1)
  1. METRONIDAZOLE [Suspect]
     Active Substance: METRONIDAZOLE
     Indication: Hepatic amoebiasis
     Route: 065

REACTIONS (4)
  - Toxic neuropathy [Recovering/Resolving]
  - Toxicity to various agents [Recovering/Resolving]
  - Toxic encephalopathy [Recovering/Resolving]
  - Skin hyperpigmentation [Recovering/Resolving]
